FAERS Safety Report 14072880 (Version 1)
Quarter: 2017Q4

REPORT INFORMATION
  Report Type: Spontaneous
  Country: US (occurrence: None)
  Receive Date: 20171011
  Receipt Date: 20171011
  Transmission Date: 20180321
  Serious: No
  Sender: FDA-Public Use
  Company Number: None

PATIENT

DRUGS (4)
  1. METHYLPHENIDATE HCL EXTENDED RELEASE METHYLPHENIDATE HCL EXTENDED RELEASE [Suspect]
     Active Substance: METHYLPHENIDATE HYDROCHLORIDE
     Dosage: SIZE: 100 CAPSULES
     Route: 048
  2. METHYLPHENIDATE HCL EXTENDED RELEASE METHYLPHENIDATE HCL EXTENDED RELEASE [Suspect]
     Active Substance: METHYLPHENIDATE HYDROCHLORIDE
     Dosage: SIZE: 100 CAPSULES
     Route: 048
  3. METHYLPHENIDATE HCL EXTENDED RELEASE METHYLPHENIDATE HCL EXTENDED RELEASE [Suspect]
     Active Substance: METHYLPHENIDATE HYDROCHLORIDE
     Dosage: SIZE: 100 CAPSULES
     Route: 048
  4. METADATE CD [Suspect]
     Active Substance: METHYLPHENIDATE HYDROCHLORIDE

REACTIONS (1)
  - Product label confusion [None]
